FAERS Safety Report 9173369 (Version 1)
Quarter: 2013Q1

REPORT INFORMATION
  Report Type: Spontaneous
  Country: US (occurrence: None)
  Receive Date: 20130319
  Receipt Date: 20130319
  Transmission Date: 20140127
  Serious: Yes (Other)
  Sender: FDA-Public Use
  Company Number: None

PATIENT
  Age: 48 Year
  Sex: Female
  Weight: 68.04 kg

DRUGS (1)
  1. QUETIAPINE FUMARATE [Suspect]
     Dosage: TWO PILLS AT BEDTIMW ONCE PO
     Route: 048
     Dates: start: 20130201, end: 20130317

REACTIONS (3)
  - Dyspnoea [None]
  - Fear [None]
  - Product substitution issue [None]
